FAERS Safety Report 13263798 (Version 1)
Quarter: 2017Q1

REPORT INFORMATION
  Report Type: Spontaneous
  Country: US (occurrence: US)
  Receive Date: 20170223
  Receipt Date: 20170223
  Transmission Date: 20170428
  Serious: No
  Sender: FDA-Public Use
  Company Number: US-PFIZER INC-2017073339

PATIENT
  Age: 59 Year
  Sex: Male

DRUGS (1)
  1. XALKORI [Suspect]
     Active Substance: CRIZOTINIB
     Dosage: 250 MG, 2X/DAY (TAKE 1 CAPSULE BY MOUTH TWICE A DAY WITH OR WITHOUT FOOD)
     Route: 048

REACTIONS (1)
  - Influenza [Unknown]
